FAERS Safety Report 20939671 (Version 6)
Quarter: 2022Q4

REPORT INFORMATION
  Report Type: Report from Study
  Country: GB (occurrence: None)
  Receive Date: 20220609
  Receipt Date: 20221110
  Transmission Date: 20230112
  Serious: Yes (Other)
  Sender: FDA-Public Use
  Company Number: GB-ROCHE-3105190

PATIENT
  Age: 55 Year
  Sex: Male

DRUGS (19)
  1. TIRAGOLUMAB [Suspect]
     Active Substance: TIRAGOLUMAB
     Indication: Oesophageal cancer metastatic
     Dosage: START DATE OF MOST RECENT DOSE OF STUDY DRUG PRIOR TO AE: 26/APR/2022
     Route: 042
     Dates: start: 20220315
  2. ATEZOLIZUMAB [Suspect]
     Active Substance: ATEZOLIZUMAB
     Indication: Oesophageal cancer metastatic
     Route: 041
     Dates: start: 20220315
  3. FLUOROURACIL [Suspect]
     Active Substance: FLUOROURACIL
     Indication: Oesophageal cancer metastatic
     Dosage: START DATE OF MOST RECENT DOSE OF STUDY DRUG PRIOR TO AE: 26/APR/2022
     Route: 042
     Dates: start: 20220315
  4. CISPLATIN [Suspect]
     Active Substance: CISPLATIN
     Indication: Oesophageal cancer metastatic
     Dosage: START DATE OF MOST RECENT DOSE OF STUDY DRUG PRIOR TO AE: 26/APR/2022
     Route: 042
     Dates: start: 20220315
  5. CALCIUM CHLORIDE\SODIUM CHLORIDE\SODIUM PHOSPHATE, DIBASIC, ANHYDROUS\ [Concomitant]
     Active Substance: CALCIUM CHLORIDE\SODIUM CHLORIDE\SODIUM PHOSPHATE, DIBASIC, ANHYDROUS\SODIUM PHOSPHATE, MONOBASIC, A
     Indication: Oral discomfort
     Dosage: DRUG DOSE FIRST ADMINISTERED IS 1 OTHER ?GIVEN FOR PRPOHYLAXIS IS NO, ONGOING-YES
     Route: 048
     Dates: start: 20220404
  6. BENZYDAMINE [Concomitant]
     Active Substance: BENZYDAMINE
     Indication: Oral discomfort
     Dosage: GIVEN FOR PROPHYLAXIS IS NO, ONGOING-YES
     Route: 048
     Dates: start: 20220426
  7. ONDANSETRON [Concomitant]
     Active Substance: ONDANSETRON
     Indication: Nausea
     Dosage: GIVEN FOR PROPHYLAXIS IS NO; ONGOING-YES
     Route: 048
     Dates: start: 20220426
  8. CYCLIZINE [Concomitant]
     Active Substance: CYCLIZINE
     Indication: Nausea
     Dosage: GIVEN FOR PROPHYLAXIS IS NO; ONGOING -YES
     Route: 048
     Dates: start: 20220321
  9. LANSOPRAZOLE [Concomitant]
     Active Substance: LANSOPRAZOLE
     Dosage: GIVEN FOR PROPHYLAXIS IS NO; ONGOING -YES
     Route: 048
  10. BISOPROLOL [Concomitant]
     Active Substance: BISOPROLOL
     Dosage: GIVEN FOR PROPHYLAXIS IS NO; ONGOING -YES
     Route: 048
  11. TICAGRELOR [Concomitant]
     Active Substance: TICAGRELOR
     Dosage: GIVEN FOR PROPHYLAXIS IS NO; ONGOING -YES
     Route: 048
  12. RAMIPRIL [Concomitant]
     Active Substance: RAMIPRIL
     Dosage: GIVEN FOR PROPHYLAXIS IS NO; ONGOING -YES
     Route: 048
  13. ATORVASTATIN [Concomitant]
     Active Substance: ATORVASTATIN
     Dosage: GIVEN FOR PROPHYLAXIS IS YES; ONGOING -YES
     Route: 048
  14. ASPIRIN [Concomitant]
     Active Substance: ASPIRIN
     Dosage: GIVEN FOR PROPHYLAXIS IS NO; ONGOING -YES
     Route: 048
  15. POTASSIUM CHLORIDE [Concomitant]
     Active Substance: POTASSIUM CHLORIDE
     Dosage: 20 OTHER
     Route: 042
     Dates: start: 20220315
  16. MAGNESIUM SULFATE [Concomitant]
     Active Substance: MAGNESIUM SULFATE
     Dosage: 10 OTHER
     Route: 042
     Dates: start: 20220315
  17. FLUCONAZOLE [Concomitant]
     Active Substance: FLUCONAZOLE
     Indication: Mouth ulceration
     Route: 048
     Dates: start: 20220912
  18. GRANULOCYTE COLONY-STIMULATING FACTOR NOS [Concomitant]
     Active Substance: GRANULOCYTE COLONY-STIMULATING FACTOR NOS
  19. AMOXICILLIN\CLAVULANATE POTASSIUM [Concomitant]
     Active Substance: AMOXICILLIN\CLAVULANATE POTASSIUM
     Indication: COVID-19
     Route: 048
     Dates: start: 20221004, end: 20221011

REACTIONS (1)
  - Palatal ulcer [Recovering/Resolving]

NARRATIVE: CASE EVENT DATE: 20220515
